FAERS Safety Report 14673266 (Version 2)
Quarter: 2018Q2

REPORT INFORMATION
  Report Type: Spontaneous
  Country: JP (occurrence: JP)
  Receive Date: 20180323
  Receipt Date: 20180401
  Transmission Date: 20180711
  Serious: Yes (Other)
  Sender: FDA-Public Use
  Company Number: PHJP2018JP005975

PATIENT
  Age: 12 Year
  Sex: Female

DRUGS (1)
  1. PATANOL [Suspect]
     Active Substance: OLOPATADINE HYDROCHLORIDE
     Indication: CONJUNCTIVITIS ALLERGIC
     Dosage: UNK
     Route: 047
     Dates: start: 20160802

REACTIONS (2)
  - Alopecia areata [Not Recovered/Not Resolved]
  - Alopecia areata [Recovered/Resolved]

NARRATIVE: CASE EVENT DATE: 20160812
